FAERS Safety Report 19024239 (Version 1)
Quarter: 2021Q1

REPORT INFORMATION
  Report Type: Spontaneous
  Country: VE (occurrence: VE)
  Receive Date: 20210318
  Receipt Date: 20210318
  Transmission Date: 20210420
  Serious: Yes (Other)
  Sender: FDA-Public Use
  Company Number: NVSC2021VE055123

PATIENT
  Sex: Female

DRUGS (2)
  1. GLIVEC [Suspect]
     Active Substance: IMATINIB MESYLATE
     Dosage: 4 DF
     Route: 065
  2. GLIVEC [Suspect]
     Active Substance: IMATINIB MESYLATE
     Indication: CHRONIC MYELOID LEUKAEMIA
     Dosage: IN JAN 2 DF
     Route: 065

REACTIONS (5)
  - Retinal detachment [Unknown]
  - Trigeminal neuralgia [Unknown]
  - Pain [Unknown]
  - Platelet count increased [Unknown]
  - Asthenopia [Unknown]
